FAERS Safety Report 5760448-X (Version None)
Quarter: 2008Q2

REPORT INFORMATION
  Report Type: 
  Country: None (occurrence: None)
  Receive Date: 20080605
  Receipt Date: 20080525
  Transmission Date: 20081010
  Serious: Yes (Other)
  Sender: FDA-Public Use
  Company Number: US-PFIZER INC-2008045353

PATIENT
  Sex: Male
  Weight: 115.9 kg

DRUGS (2)
  1. CHANTIX [Suspect]
     Indication: SMOKING CESSATION THERAPY
     Dates: start: 20080520, end: 20080523
  2. PROTONIX [Concomitant]

REACTIONS (5)
  - AGITATION [None]
  - FEELING JITTERY [None]
  - FORMICATION [None]
  - SMOKER [None]
  - VIOLENCE-RELATED SYMPTOM [None]
